FAERS Safety Report 18841040 (Version 1)
Quarter: 2021Q1

REPORT INFORMATION
  Report Type: Report from Study
  Country: US (occurrence: US)
  Receive Date: 20210204
  Receipt Date: 20210204
  Transmission Date: 20210419
  Serious: Yes (Other)
  Sender: FDA-Public Use
  Company Number: US-TEVA-2020-US-1177981

PATIENT
  Sex: Female

DRUGS (1)
  1. AUSTEDO [Suspect]
     Active Substance: DEUTETRABENAZINE
     Indication: TARDIVE DYSKINESIA
     Dosage: 24 MILLIGRAM DAILY;
     Route: 065
     Dates: start: 20200124

REACTIONS (7)
  - Loss of consciousness [Unknown]
  - Gait disturbance [Unknown]
  - Disorientation [Unknown]
  - Impaired driving ability [Unknown]
  - Fatigue [Unknown]
  - Balance disorder [Unknown]
  - Nervousness [Unknown]
